FAERS Safety Report 20732738 (Version 1)
Quarter: 2022Q2

REPORT INFORMATION
  Report Type: Spontaneous
  Country: US (occurrence: US)
  Receive Date: 20220420
  Receipt Date: 20220420
  Transmission Date: 20220721
  Serious: No
  Sender: FDA-Public Use
  Company Number: US-ALMIRALL, LLC-2021AQU000254

PATIENT

DRUGS (5)
  1. ACZONE [Suspect]
     Active Substance: DAPSONE
     Indication: Acne
     Dosage: UNK, AS NEEDED
     Route: 061
     Dates: start: 2016
  2. ACZONE [Suspect]
     Active Substance: DAPSONE
     Indication: Keratosis pilaris
  3. RETIN-A [Concomitant]
     Active Substance: TRETINOIN
     Indication: Product used for unknown indication
     Dosage: UNK
  4. CLINDAMYCIN [Concomitant]
     Active Substance: CLINDAMYCIN
     Indication: Product used for unknown indication
     Dosage: UNK
  5. ONEXTON [Concomitant]
     Active Substance: BENZOYL PEROXIDE\CLINDAMYCIN PHOSPHATE
     Indication: Product used for unknown indication
     Dosage: UNK

REACTIONS (3)
  - Skin discolouration [Unknown]
  - Product quality issue [Unknown]
  - Product colour issue [Unknown]
